FAERS Safety Report 17355307 (Version 1)
Quarter: 2020Q1

REPORT INFORMATION
  Report Type: Spontaneous
  Country: US (occurrence: US)
  Receive Date: 20200131
  Receipt Date: 20200131
  Transmission Date: 20200409
  Serious: No
  Sender: FDA-Public Use
  Company Number: US-CELGENEUS-USA-20200109420

PATIENT
  Sex: Female

DRUGS (1)
  1. OTEZLA [Suspect]
     Active Substance: APREMILAST
     Indication: PSORIASIS
     Dosage: 60 MILLIGRAM
     Route: 048
     Dates: start: 20181201

REACTIONS (8)
  - Diarrhoea [Unknown]
  - Arthralgia [Unknown]
  - Nerve injury [Unknown]
  - Fatigue [Unknown]
  - Dry skin [Unknown]
  - Unevaluable event [Unknown]
  - Ear pain [Unknown]
  - Pain [Unknown]

NARRATIVE: CASE EVENT DATE: 2020
